FAERS Safety Report 6998980-3 (Version None)
Quarter: 2010Q3

REPORT INFORMATION
  Report Type: 
  Country: None (occurrence: None)
  Receive Date: 20100920
  Receipt Date: 20100706
  Transmission Date: 20110219
  Serious: No
  Sender: FDA-Public Use
  Company Number: US-ASTRAZENECA-2010SE31416

PATIENT
  Age: 49 Year
  Sex: Female
  Weight: 56.7 kg

DRUGS (4)
  1. SEROQUEL XR [Suspect]
     Indication: POST-TRAUMATIC STRESS DISORDER
     Route: 048
     Dates: end: 20100701
  2. SEROQUEL XR [Suspect]
     Route: 048
  3. WELLBUTRIN [Concomitant]
  4. CLONOPIN [Concomitant]

REACTIONS (5)
  - CATARACT [None]
  - CHOKING [None]
  - DYSPHAGIA [None]
  - OFF LABEL USE [None]
  - THERAPEUTIC RESPONSE UNEXPECTED [None]
